FAERS Safety Report 26066985 (Version 2)
Quarter: 2025Q4

REPORT INFORMATION
  Report Type: Report from Study
  Country: CA (occurrence: CA)
  Receive Date: 20251119
  Receipt Date: 20251128
  Transmission Date: 20260118
  Serious: Yes (Other)
  Sender: HLS THERAPEUTICS
  Company Number: CA-HLS-202503066

PATIENT
  Sex: Male

DRUGS (1)
  1. CLOZARIL [Suspect]
     Active Substance: CLOZAPINE
     Indication: Product used for unknown indication
     Dosage: LAST DOSE OF CLOZAPINE (500MG QHS)
     Route: 048
     Dates: start: 20200914, end: 20251109

REACTIONS (4)
  - Atrial fibrillation [Unknown]
  - COVID-19 [Unknown]
  - Pyrexia [Unknown]
  - Influenza like illness [Unknown]
